FAERS Safety Report 24439389 (Version 2)
Quarter: 2024Q4

REPORT INFORMATION
  Report Type: Spontaneous
  Country: PL (occurrence: PL)
  Receive Date: 20241015
  Receipt Date: 20241203
  Transmission Date: 20250115
  Serious: Yes (Other)
  Sender: BRISTOL-MYERS SQUIBB COMPANY
  Company Number: PL-BRISTOL-MYERS SQUIBB COMPANY-2024-160515

PATIENT
  Age: 67 Year
  Sex: Female

DRUGS (7)
  1. NIVOLUMAB [Suspect]
     Active Substance: NIVOLUMAB
     Indication: Gastric cancer
     Dates: start: 20231002
  2. NIVOLUMAB [Suspect]
     Active Substance: NIVOLUMAB
  3. NIVOLUMAB [Suspect]
     Active Substance: NIVOLUMAB
     Dosage: 6TH COURSE OF TREATMENT
     Dates: start: 20240102
  4. NIVOLUMAB [Suspect]
     Active Substance: NIVOLUMAB
     Dosage: 7TH COURSE OF TREATMENT
     Dates: start: 20240115
  5. FLUOROURACIL\LEUCOVORIN CALCIUM\OXALIPLATIN [Suspect]
     Active Substance: FLUOROURACIL\LEUCOVORIN CALCIUM\OXALIPLATIN
     Indication: Product used for unknown indication
     Dates: start: 20231002
  6. FLUOROURACIL\LEUCOVORIN CALCIUM\OXALIPLATIN [Suspect]
     Active Substance: FLUOROURACIL\LEUCOVORIN CALCIUM\OXALIPLATIN
     Dosage: 6TH COURSE OF TREATMENT
     Dates: start: 20240102
  7. FLUOROURACIL\LEUCOVORIN CALCIUM\OXALIPLATIN [Suspect]
     Active Substance: FLUOROURACIL\LEUCOVORIN CALCIUM\OXALIPLATIN
     Dosage: 7TH COURSE OF TREATMENT
     Dates: start: 20240115

REACTIONS (10)
  - Vomiting [Unknown]
  - Decreased appetite [Unknown]
  - Pyrexia [Unknown]
  - Seizure [Unknown]
  - Swelling face [Unknown]
  - Cyanosis [Unknown]
  - Upper respiratory tract infection [Unknown]
  - Fungal infection [Unknown]
  - Blood thyroid stimulating hormone increased [Not Recovered/Not Resolved]
  - Lymphadenopathy [Unknown]

NARRATIVE: CASE EVENT DATE: 20231001
